FAERS Safety Report 17973477 (Version 2)
Quarter: 2020Q3

REPORT INFORMATION
  Report Type: Other
  Country: US (occurrence: US)
  Receive Date: 20200702
  Receipt Date: 20200918
  Transmission Date: 20201103
  Serious: Yes (Death, Other)
  Sender: FDA-Public Use
  Company Number: US-ACORDA-ACO_165339_2020

PATIENT
  Age: 58 Year
  Sex: Male

DRUGS (1)
  1. AMPYRA [Suspect]
     Active Substance: DALFAMPRIDINE
     Indication: MULTIPLE SCLEROSIS
     Dosage: 10 MILLIGRAM, BID
     Route: 048
     Dates: start: 201805

REACTIONS (1)
  - Acute myeloid leukaemia [Fatal]

NARRATIVE: CASE EVENT DATE: 20200415
